FAERS Safety Report 5897316 (Version 4)
Quarter: 2012Q4

REPORT INFORMATION
  Report Type: Report from Study
  Country: FR (occurrence: FR)
  Receive Date: 20051012
  Receipt Date: 20120924
  Transmission Date: 20130627
  Serious: Yes (Hospitalization, Disabling)
  Sender: FDA-Public Use
  Company Number: FR-GLAXOSMITHKLINE-B0396378A

PATIENT
  Age: 27 None
  Sex: Male
  Weight: 65.6 kg

DRUGS (5)
  1. LAMICTAL [Suspect]
     Indication: EPILEPSY
     Route: 048
     Dates: start: 20050504, end: 20050711
  2. ANTIBIOTICS [Concomitant]
     Route: 065
     Dates: end: 20050429
  3. URBANYL [Concomitant]
     Route: 065
     Dates: start: 200505
  4. BIPROFENID [Concomitant]
     Indication: PRODUCT USED FOR UNKNOWN INDICATION
     Dosage: 150MG Twice per day
     Route: 065
     Dates: start: 20050520
  5. MOPRAL [Concomitant]
     Indication: PRODUCT USED FOR UNKNOWN INDICATION
     Dosage: 20MG Per day
     Route: 065
     Dates: start: 20050520

REACTIONS (13)
  - Stevens-Johnson syndrome [Recovered/Resolved with Sequelae]
  - Blister [Recovered/Resolved]
  - Oedema peripheral [Recovered/Resolved]
  - Corneal perforation [Recovered/Resolved with Sequelae]
  - Visual acuity reduced [Not Recovered/Not Resolved]
  - Macule [Recovered/Resolved]
  - Pruritus [Recovered/Resolved]
  - Photophobia [Recovered/Resolved with Sequelae]
  - Dry eye [Recovered/Resolved with Sequelae]
  - Conjunctivitis [Recovered/Resolved with Sequelae]
  - Symblepharon [Recovered/Resolved with Sequelae]
  - Odynophagia [Recovered/Resolved]
  - Tonsillitis [Recovered/Resolved]
